FAERS Safety Report 19557223 (Version 1)
Quarter: 2021Q3

REPORT INFORMATION
  Report Type: Spontaneous
  Country: DE (occurrence: DE)
  Receive Date: 20210714
  Receipt Date: 20210714
  Transmission Date: 20211014
  Serious: Yes (Hospitalization)
  Sender: FDA-Public Use
  Company Number: DE-BAYER-2021-168477

PATIENT
  Age: 70 Year
  Sex: Female
  Weight: 63 kg

DRUGS (10)
  1. IBUPROFEN. [Concomitant]
     Active Substance: IBUPROFEN
     Dosage: 600 MG
     Route: 048
  2. DICLOFENAC [Concomitant]
     Active Substance: DICLOFENAC
     Dosage: 75 MG
     Route: 048
  3. PRAVASTATIN. [Concomitant]
     Active Substance: PRAVASTATIN
     Dosage: 40 MG
     Route: 048
  4. HYDROXYZINE [Concomitant]
     Active Substance: HYDROXYZINE HYDROCHLORIDE
     Dosage: 25 MG
     Route: 048
  5. BISOPROLOL [Concomitant]
     Active Substance: BISOPROLOL
     Dosage: 2.5 MG
     Route: 048
  6. PANTOPRAZOL [PANTOPRAZOLE] [Concomitant]
     Active Substance: PANTOPRAZOLE
     Dosage: 40 MG
     Route: 048
  7. DIENOGEST + ESTRADIOL VALERATE [Suspect]
     Active Substance: DIENOGEST\ESTRADIOL VALERATE
     Dosage: 2|2 MG
     Route: 048
  8. NEUREXAN [Concomitant]
     Active Substance: HOMEOPATHICS
     Dosage: 1 DF, PRN
     Route: 048
  9. PREDNISOLONE. [Concomitant]
     Active Substance: PREDNISOLONE
     Dosage: 10 MG
     Route: 048
  10. ACETYLSALICYLIC ACID [Concomitant]
     Active Substance: ASPIRIN
     Dosage: 100 MG
     Route: 048

REACTIONS (3)
  - Paraesthesia [Unknown]
  - Condition aggravated [Unknown]
  - Paresis [Unknown]
